FAERS Safety Report 10143731 (Version 2)
Quarter: 2014Q3

REPORT INFORMATION
  Report Type: Report from Study
  Country: JP (occurrence: JP)
  Receive Date: 20140430
  Receipt Date: 20140801
  Transmission Date: 20150326
  Serious: Yes (Hospitalization)
  Sender: FDA-Public Use
  Company Number: JP-ABBVIE-14P-087-1231471-00

PATIENT
  Age: 80 Year
  Sex: Male
  Weight: 58 kg

DRUGS (3)
  1. LIPACREON GRANULES 300MG SACHET [Suspect]
     Active Substance: PANCRELIPASE
     Indication: PANCREATIC INSUFFICIENCY
     Route: 048
     Dates: start: 20130729
  2. CAMOSTAT MESILATE [Concomitant]
     Indication: PANCREATITIS CHRONIC
     Route: 048
  3. CIMETIDINE [Concomitant]
     Active Substance: CIMETIDINE
     Indication: DISEASE COMPLICATION
     Route: 048

REACTIONS (2)
  - Thoracic vertebral fracture [Recovering/Resolving]
  - Spinal compression fracture [Recovering/Resolving]

NARRATIVE: CASE EVENT DATE: 20131130
